FAERS Safety Report 12581155 (Version 4)
Quarter: 2016Q4

REPORT INFORMATION
  Report Type: Report from Study
  Country: CA (occurrence: CA)
  Receive Date: 20160721
  Receipt Date: 20161003
  Transmission Date: 20170207
  Serious: Yes (Hospitalization, Other)
  Sender: FDA-Public Use
  Company Number: CA-JNJFOC-20160714166

PATIENT
  Age: 76 Year
  Sex: Female
  Weight: 65 kg

DRUGS (5)
  1. DIAMICRON [Concomitant]
     Active Substance: GLICLAZIDE
     Dosage: TABLETS 3 AC BREAKFAST
     Route: 065
  2. ATACAND [Concomitant]
     Active Substance: CANDESARTAN CILEXETIL
     Route: 065
  3. SPIRIVA [Concomitant]
     Active Substance: TIOTROPIUM BROMIDE MONOHYDRATE
     Dosage: TABLETS 3 AC BREAKFAST
     Route: 065
  4. REMICADE [Suspect]
     Active Substance: INFLIXIMAB
     Indication: PSORIASIS
     Route: 042
     Dates: start: 2009
  5. CITALOPRAM [Concomitant]
     Active Substance: CITALOPRAM HYDROBROMIDE
     Dosage: TABLETS 3 AC BREAKFAST
     Route: 065

REACTIONS (10)
  - Lower respiratory tract infection [Unknown]
  - Off label use [Unknown]
  - Blood pressure decreased [Unknown]
  - Dehydration [Unknown]
  - Intestinal perforation [Unknown]
  - Intestinal resection [Unknown]
  - Renal failure [Recovered/Resolved]
  - Renal disorder [Unknown]
  - Coma [Unknown]
  - Product use issue [Unknown]

NARRATIVE: CASE EVENT DATE: 2009
